FAERS Safety Report 13317373 (Version 1)
Quarter: 2017Q1

REPORT INFORMATION
  Report Type: Spontaneous
  Country: GB (occurrence: GB)
  Receive Date: 20170310
  Receipt Date: 20170310
  Transmission Date: 20170428
  Serious: Yes (Other)
  Sender: FDA-Public Use
  Company Number: PHHY2017GB031326

PATIENT
  Age: 4 Week
  Sex: Male

DRUGS (1)
  1. NYSTATIN. [Suspect]
     Active Substance: NYSTATIN
     Indication: ORAL CANDIDIASIS
     Dosage: 100,000 UNITS/ML
     Route: 048
     Dates: start: 20170113

REACTIONS (2)
  - Skin discolouration [Unknown]
  - Cough [Recovered/Resolved]
